FAERS Safety Report 12183592 (Version 1)
Quarter: 2016Q1

REPORT INFORMATION
  Report Type: Spontaneous
  Country: HR (occurrence: HR)
  Receive Date: 20160316
  Receipt Date: 20160316
  Transmission Date: 20160526
  Serious: Yes (Other)
  Sender: FDA-Public Use
  Company Number: HR-TEVA-643079ACC

PATIENT
  Age: 53 Year
  Sex: Female

DRUGS (2)
  1. ATORVOX TABLETE 10 MG [Suspect]
     Active Substance: ATORVASTATIN
     Route: 065
  2. SORTIS [Suspect]
     Active Substance: ATORVASTATIN
     Route: 048

REACTIONS (3)
  - Amylase increased [Recovered/Resolved]
  - Abdominal pain [Recovered/Resolved]
  - Blood glucose increased [Recovered/Resolved with Sequelae]

NARRATIVE: CASE EVENT DATE: 20150814
